FAERS Safety Report 13089655 (Version 1)
Quarter: 2016Q4

REPORT INFORMATION
  Report Type: Spontaneous
  Country: US (occurrence: US)
  Receive Date: 20161230
  Receipt Date: 20161230
  Transmission Date: 20170207
  Serious: No
  Sender: FDA-Public Use
  Company Number: None

PATIENT
  Age: 71 Year
  Sex: Female

DRUGS (1)
  1. CAPECITABINE 500MG GENENTECH [Suspect]
     Active Substance: CAPECITABINE
     Indication: COLON CANCER
     Dosage: TAKE 4 TABS (2000MG) EVRY AM; FOR 14 DAYS THEN OFF 7 DAYS; ORALLY
     Route: 048
     Dates: start: 20161213, end: 20161229

REACTIONS (2)
  - Skin exfoliation [None]
  - Peripheral swelling [None]

NARRATIVE: CASE EVENT DATE: 20161213
